FAERS Safety Report 22060967 (Version 3)
Quarter: 2023Q1

REPORT INFORMATION
  Report Type: Spontaneous
  Country: AU (occurrence: AU)
  Receive Date: 20230303
  Receipt Date: 20230320
  Transmission Date: 20230418
  Serious: Yes (Other)
  Sender: FDA-Public Use
  Company Number: AU-BAYER-2023A026302

PATIENT
  Age: 69 Year
  Sex: Male

DRUGS (6)
  1. VITRAKVI [Suspect]
     Active Substance: LAROTRECTINIB
     Indication: Uveal melanoma
     Dosage: UNK
     Dates: start: 20230123, end: 20230227
  2. VITRAKVI [Suspect]
     Active Substance: LAROTRECTINIB
     Indication: Metastasis
  3. VITRAKVI [Suspect]
     Active Substance: LAROTRECTINIB
     Indication: Metastases to liver
  4. OMEPRAZOLE [Concomitant]
     Active Substance: OMEPRAZOLE
     Dosage: 20 MG, QD
  5. METOCLOPRAMIDE [Concomitant]
     Active Substance: METOCLOPRAMIDE
     Dosage: 10 MG, PRN
  6. DEXAMETHASONE [Concomitant]
     Active Substance: DEXAMETHASONE
     Dosage: 4 MG, QD

REACTIONS (6)
  - Uveal melanoma [None]
  - Metastases to liver [None]
  - Obstruction gastric [None]
  - Abdominal distension [None]
  - Night sweats [None]
  - Drug ineffective [Not Recovered/Not Resolved]

NARRATIVE: CASE EVENT DATE: 20230201
